FAERS Safety Report 8014299-6 (Version None)
Quarter: 2011Q4

REPORT INFORMATION
  Report Type: 
  Country: None (occurrence: None)
  Receive Date: 20111229
  Receipt Date: 20111222
  Transmission Date: 20120403
  Serious: Yes (Other)
  Sender: FDA-Public Use
  Company Number: BE-GLAXOSMITHKLINE-B0772153A

PATIENT

DRUGS (5)
  1. LAMICTAL [Suspect]
     Indication: EPILEPSY
     Dosage: 25MG TWICE PER DAY
     Route: 048
  2. ENBREL [Suspect]
     Indication: PSORIASIS
     Route: 065
  3. DEPAKENE [Suspect]
     Indication: EPILEPSY
     Dosage: 300MG PER DAY
     Route: 065
  4. CARBAMAZEPINE [Suspect]
     Indication: EPILEPSY
     Dosage: 400MG PER DAY
     Route: 048
  5. TOPAMAX [Suspect]
     Indication: EPILEPSY
     Dosage: 150MG TWICE PER DAY
     Route: 048

REACTIONS (2)
  - EPILEPSY [None]
  - DRUG INTERACTION [None]
